FAERS Safety Report 7921432 (Version 6)
Quarter: 2014Q4

REPORT INFORMATION
  Report Type: Spontaneous
  Country: US (occurrence: US)
  Receive Date: 20110429
  Receipt Date: 20141106
  Transmission Date: 20150529
  Serious: Yes (Other)
  Sender: FDA-Public Use
  Company Number: US-ASTRAZENECA-2010SE32525

PATIENT
  Age: 54 Year
  Sex: Male

DRUGS (3)
  1. NEXIUM [Suspect]
     Active Substance: ESOMEPRAZOLE MAGNESIUM
     Indication: DYSPEPSIA
     Route: 048
  2. PURE BAKING SODA [Suspect]
     Active Substance: SODIUM BICARBONATE
     Route: 065
  3. NEXIUM [Suspect]
     Active Substance: ESOMEPRAZOLE MAGNESIUM
     Indication: GASTROOESOPHAGEAL REFLUX DISEASE
     Route: 048

REACTIONS (15)
  - Malaise [Unknown]
  - Haematochezia [Unknown]
  - Drug dose omission [Unknown]
  - Sleep disorder due to a general medical condition [Unknown]
  - Nausea [Unknown]
  - Gastric perforation [Unknown]
  - Abdominal discomfort [Unknown]
  - Intentional product misuse [Unknown]
  - Gastrooesophageal reflux disease [Unknown]
  - Choking [Unknown]
  - Dyspepsia [Unknown]
  - Vomiting [Unknown]
  - Regurgitation [Unknown]
  - Abdominal pain upper [Unknown]
  - Insomnia [Unknown]
